FAERS Safety Report 9485774 (Version 1)
Quarter: 2013Q3

REPORT INFORMATION
  Report Type: Spontaneous
  Country: CN (occurrence: None)
  Receive Date: 20130813
  Receipt Date: 20130813
  Transmission Date: 20140515
  Serious: Yes (Death, Other)
  Sender: FDA-Public Use
  Company Number: FK201303089

PATIENT
  Age: 58 Year
  Sex: Female

DRUGS (6)
  1. DEXAMETHASONE [Suspect]
     Indication: PLASMA CELL MYELOMA
  2. PREDNISONE [Suspect]
     Indication: PLASMA CELL MYELOMA
  3. ETIMICIN [Concomitant]
  4. MOXALACTAM(LATAMOXEF) [Concomitant]
  5. ETIMICIN(AZITHROMYCIN) [Concomitant]
  6. MOXALACTAM(LATAMOXEF) [Concomitant]

REACTIONS (11)
  - Listeriosis [None]
  - Diabetes mellitus [None]
  - Listeria sepsis [None]
  - Nervous system disorder [None]
  - Coma [None]
  - Abdominal pain [None]
  - Nausea [None]
  - Vomiting [None]
  - Nuchal rigidity [None]
  - Mental impairment [None]
  - Convulsion [None]
